FAERS Safety Report 5897534-X (Version None)
Quarter: 2008Q3

REPORT INFORMATION
  Report Type: 
  Country: None (occurrence: None)
  Receive Date: 20080925
  Receipt Date: 20080825
  Transmission Date: 20090109
  Serious: No
  Sender: FDA-Public Use
  Company Number: US-BAYER-200832273NA

PATIENT
  Sex: Female

DRUGS (1)
  1. CIPROFLOXACIN [Suspect]
     Indication: STAPHYLOCOCCAL INFECTION
     Dates: start: 20041201, end: 20060101

REACTIONS (2)
  - ADVERSE EVENT [None]
  - IMMUNE SYSTEM DISORDER [None]
